FAERS Safety Report 8955913 (Version 2)
Quarter: 2013Q2

REPORT INFORMATION
  Report Type: Report from Study
  Country: DE (occurrence: DE)
  Receive Date: 20121210
  Receipt Date: 20130423
  Transmission Date: 20140414
  Serious: Yes (Hospitalization)
  Sender: FDA-Public Use
  Company Number: DE-UCBSA-072604

PATIENT
  Age: 20 Year
  Sex: Male

DRUGS (3)
  1. VIMPAT [Suspect]
     Indication: PARTIAL SEIZURES
     Dosage: DAILY DOSE: 50 MG
     Dates: start: 20090203, end: 2009
  2. VIMPAT [Suspect]
     Indication: PARTIAL SEIZURES
     Dosage: 350 MG
     Dates: start: 2009, end: 20090318
  3. OXCARBAZEPINE [Concomitant]
     Dosage: DAILY DOSE: 2400 MG

REACTIONS (2)
  - Partial seizures [Unknown]
  - Drug ineffective [Recovered/Resolved]
